FAERS Safety Report 21337812 (Version 1)
Quarter: 2022Q3

REPORT INFORMATION
  Report Type: Report from Study
  Country: DE (occurrence: None)
  Receive Date: 20220915
  Receipt Date: 20220915
  Transmission Date: 20221027
  Serious: Yes (Other)
  Sender: FDA-Public Use
  Company Number: DE-Merck Healthcare KGaA-9350028

PATIENT
  Sex: Female

DRUGS (1)
  1. MAVENCLAD [Suspect]
     Active Substance: CLADRIBINE
     Indication: Multiple sclerosis
     Route: 048
     Dates: start: 202203

REACTIONS (10)
  - Central nervous system lesion [Not Recovered/Not Resolved]
  - Brain oedema [Not Recovered/Not Resolved]
  - Brain neoplasm [Unknown]
  - Tumefactive multiple sclerosis [Unknown]
  - Myelin oligodendrocyte glycoprotein antibody-associated disease [Unknown]
  - Nervous system disorder [Unknown]
  - CSF measles antibody positive [Unknown]
  - Rubella antibody positive [Unknown]
  - Viral test positive [Unknown]
  - CSF oligoclonal band present [Unknown]

NARRATIVE: CASE EVENT DATE: 20220801
